FAERS Safety Report 12225469 (Version 2)
Quarter: 2016Q2

REPORT INFORMATION
  Report Type: Report from Study
  Country: US (occurrence: US)
  Receive Date: 20160331
  Receipt Date: 20160603
  Transmission Date: 20160815
  Serious: No
  Sender: FDA-Public Use
  Company Number: PHEH2016US007683

PATIENT
  Age: 69 Year
  Sex: Male

DRUGS (1)
  1. COSENTYX [Suspect]
     Active Substance: SECUKINUMAB
     Indication: PSORIASIS
     Dosage: 300 MG, QMO
     Route: 065
     Dates: start: 201510, end: 201603

REACTIONS (3)
  - Fatigue [Unknown]
  - Depression [Unknown]
  - Confusional state [Unknown]

NARRATIVE: CASE EVENT DATE: 201602
